FAERS Safety Report 16597981 (Version 4)
Quarter: 2019Q3

REPORT INFORMATION
  Report Type: Spontaneous
  Country: US (occurrence: US)
  Receive Date: 20190719
  Receipt Date: 20190917
  Transmission Date: 20191004
  Serious: No
  Sender: FDA-Public Use
  Company Number: US-PFIZER INC-2019306972

PATIENT
  Age: 73 Year
  Sex: Female
  Weight: 128.8 kg

DRUGS (5)
  1. DILANTIN [Suspect]
     Active Substance: PHENYTOIN
     Dosage: UNK, 2X/DAY(TAKING IT TWICE A DAY)
  2. DILANTIN [Suspect]
     Active Substance: PHENYTOIN
     Dosage: 400 MG, DAILY
  3. DILANTIN [Suspect]
     Active Substance: PHENYTOIN
     Indication: SEIZURE
     Dosage: 100 MG, UNK
     Dates: start: 1982
  4. DILANTIN [Suspect]
     Active Substance: PHENYTOIN
     Dosage: UNK(TAKING 4)
  5. DILANTIN [Suspect]
     Active Substance: PHENYTOIN
     Dosage: 200 MG, DAILY

REACTIONS (2)
  - Drug level decreased [Unknown]
  - Intentional product use issue [Unknown]
